FAERS Safety Report 5891564-X (Version None)
Quarter: 2008Q3

REPORT INFORMATION
  Report Type: 
  Country: None (occurrence: None)
  Receive Date: 20080922
  Receipt Date: 20070516
  Transmission Date: 20090109
  Serious: Yes (Hospitalization, Other)
  Sender: FDA-Public Use
  Company Number: IT-ROCHE-571006

PATIENT
  Sex: Female

DRUGS (2)
  1. PEGASYS [Suspect]
     Route: 065
     Dates: start: 20061124, end: 20080423
  2. REBETOL [Suspect]
     Route: 065
     Dates: start: 20061124, end: 20080423

REACTIONS (4)
  - ANAEMIA [None]
  - HAEMATEMESIS [None]
  - OESOPHAGEAL CANDIDIASIS [None]
  - PORTAL HYPERTENSIVE GASTROPATHY [None]
